FAERS Safety Report 13986147 (Version 1)
Quarter: 2017Q3

REPORT INFORMATION
  Report Type: Spontaneous
  Country: US (occurrence: None)
  Receive Date: 20170918
  Receipt Date: 20170918
  Transmission Date: 20171128
  Serious: No
  Sender: FDA-Public Use
  Company Number: None

PATIENT
  Age: 25 Year
  Sex: Male
  Weight: 90.72 kg

DRUGS (3)
  1. LEVOTHYROXINE. [Suspect]
     Active Substance: LEVOTHYROXINE
  2. OLANZAPINE. [Suspect]
     Active Substance: OLANZAPINE
  3. LITHIUM CARBONATE. [Suspect]
     Active Substance: LITHIUM CARBONATE

REACTIONS (2)
  - Cardiac arrest [None]
  - Pulseless electrical activity [None]

NARRATIVE: CASE EVENT DATE: 20170822
